FAERS Safety Report 24969850 (Version 1)
Quarter: 2025Q1

REPORT INFORMATION
  Report Type: Spontaneous
  Country: SG (occurrence: SG)
  Receive Date: 20250214
  Receipt Date: 20250214
  Transmission Date: 20250409
  Serious: Yes (Hospitalization)
  Sender: UNICHEM
  Company Number: SG-UNICHEM LABORATORIES LIMITED-UNI-2025-SG-001244

PATIENT

DRUGS (10)
  1. CLONIDINE [Suspect]
     Active Substance: CLONIDINE
     Indication: Dystonia
     Route: 042
  2. CLONIDINE [Suspect]
     Active Substance: CLONIDINE
     Route: 042
  3. CLONIDINE [Suspect]
     Active Substance: CLONIDINE
     Route: 062
  4. CLONIDINE [Suspect]
     Active Substance: CLONIDINE
     Route: 048
  5. LORAZEPAM [Concomitant]
     Active Substance: LORAZEPAM
     Indication: Dystonia
     Route: 065
  6. BENSERAZIDE HYDROCHLORIDE\LEVODOPA [Concomitant]
     Active Substance: BENSERAZIDE HYDROCHLORIDE\LEVODOPA
     Indication: Dystonia
     Route: 065
  7. LEVODOPA [Concomitant]
     Active Substance: LEVODOPA
     Indication: Dystonia
     Route: 065
  8. LEVODOPA [Concomitant]
     Active Substance: LEVODOPA
     Route: 065
  9. CHLORAL HYDRATE [Concomitant]
     Active Substance: CHLORAL HYDRATE
     Indication: Poor quality sleep
     Route: 065
  10. CLONAZEPAM [Concomitant]
     Active Substance: CLONAZEPAM
     Indication: Dystonia
     Route: 065

REACTIONS (2)
  - Hypotension [Recovering/Resolving]
  - Bradycardia [Recovering/Resolving]
